FAERS Safety Report 6490098-1 (Version None)
Quarter: 2009Q4

REPORT INFORMATION
  Report Type: 
  Country: None (occurrence: None)
  Receive Date: 20091211
  Receipt Date: 20090224
  Transmission Date: 20100525
  Serious: No
  Sender: FDA-Public Use
  Company Number: A0771157A

PATIENT
  Sex: Female

DRUGS (2)
  1. FLONASE [Suspect]
     Route: 045
  2. VERAMYST [Suspect]
     Route: 045

REACTIONS (3)
  - DRUG INEFFECTIVE [None]
  - MIDDLE EAR EFFUSION [None]
  - VERTIGO [None]
